FAERS Safety Report 25206573 (Version 2)
Quarter: 2025Q3

REPORT INFORMATION
  Report Type: Spontaneous
  Country: US (occurrence: US)
  Receive Date: 20250417
  Receipt Date: 20250708
  Transmission Date: 20251021
  Serious: Yes (Other)
  Sender: CSL BEHRING
  Company Number: US-BEH-2025201893

PATIENT
  Sex: Female

DRUGS (1)
  1. HIZENTRA [Suspect]
     Active Substance: HUMAN IMMUNOGLOBULIN G
     Indication: IgG deficiency
     Dosage: 20 G, QOW
     Route: 058
     Dates: start: 202111

REACTIONS (6)
  - Pneumonia [Recovering/Resolving]
  - Dyspnoea [Unknown]
  - Headache [Unknown]
  - Illness [Unknown]
  - Infection [Unknown]
  - Incorrect dose administered [Unknown]
